FAERS Safety Report 19507115 (Version 1)
Quarter: 2021Q3

REPORT INFORMATION
  Report Type: Spontaneous
  Country: MY (occurrence: MY)
  Receive Date: 20210708
  Receipt Date: 20210708
  Transmission Date: 20211014
  Serious: Yes (Other)
  Sender: FDA-Public Use
  Company Number: NVSC2021MY150221

PATIENT
  Age: 43 Year
  Sex: Female

DRUGS (1)
  1. TEGRETOL XR [Suspect]
     Active Substance: CARBAMAZEPINE
     Dosage: 400 MG, QD
     Route: 048

REACTIONS (3)
  - Ocular hyperaemia [Recovering/Resolving]
  - Mouth ulceration [Recovering/Resolving]
  - Rash maculo-papular [Recovering/Resolving]
